FAERS Safety Report 6871173-6 (Version None)
Quarter: 2010Q3

REPORT INFORMATION
  Report Type: 
  Country: None (occurrence: None)
  Receive Date: 20100723
  Receipt Date: 20100712
  Transmission Date: 20110219
  Serious: Yes (Other)
  Sender: FDA-Public Use
  Company Number: US-PFIZER INC-2010032754

PATIENT
  Sex: Male

DRUGS (1)
  1. CHANTIX [Suspect]
     Indication: SMOKING CESSATION THERAPY
     Dosage: 0.5 MG, UNK
     Route: 048
     Dates: start: 20070917, end: 20071101

REACTIONS (14)
  - ADJUSTMENT DISORDER WITH MIXED DISTURBANCE OF EMOTION AND CONDUCT [None]
  - AGGRESSION [None]
  - ANGER [None]
  - ANXIETY [None]
  - HOMICIDAL IDEATION [None]
  - IMPULSIVE BEHAVIOUR [None]
  - INSOMNIA [None]
  - INTERMITTENT EXPLOSIVE DISORDER [None]
  - MAJOR DEPRESSION [None]
  - MOOD ALTERED [None]
  - NIGHTMARE [None]
  - PANIC DISORDER [None]
  - PARANOIA [None]
  - SUICIDE ATTEMPT [None]
